FAERS Safety Report 24004854 (Version 1)
Quarter: 2024Q2

REPORT INFORMATION
  Report Type: Spontaneous
  Country: ES (occurrence: ES)
  Receive Date: 20240624
  Receipt Date: 20240624
  Transmission Date: 20240716
  Serious: Yes (Hospitalization, Other)
  Sender: FDA-Public Use
  Company Number: ES-AEMPS-1534471

PATIENT
  Age: 92 Year
  Sex: Female

DRUGS (6)
  1. CLOPIDOGREL [Interacting]
     Active Substance: CLOPIDOGREL BISULFATE
     Indication: Cerebrovascular accident
     Dosage: 75 MILLIGRAM, ONCE A DAY
     Route: 048
     Dates: start: 202209
  2. DEXKETOPROFEN [Interacting]
     Active Substance: DEXKETOPROFEN
     Indication: Back pain
     Dosage: UNK
     Route: 048
     Dates: start: 202403, end: 20240302
  3. DILTIAZEM [Concomitant]
     Active Substance: DILTIAZEM
     Indication: Hypertension
     Dosage: 60 MILLIGRAM, ONCE A DAY
     Route: 048
     Dates: start: 200705
  4. DOXIUM FUERTE [Concomitant]
     Indication: Product used for unknown indication
     Dosage: 500 MILLIGRAM, ONCE A DAY
     Route: 048
     Dates: start: 20121019
  5. Rectogesic [Concomitant]
     Indication: Constipation
     Dosage: UNK
     Route: 054
  6. SIMVASTATIN [Concomitant]
     Active Substance: SIMVASTATIN
     Indication: Product used for unknown indication
     Dosage: 20 MILLIGRAM, ONCE A DAY
     Route: 048
     Dates: start: 20170407

REACTIONS (1)
  - Lower gastrointestinal haemorrhage [Recovered/Resolved]

NARRATIVE: CASE EVENT DATE: 20240302
